FAERS Safety Report 5914113-6 (Version None)
Quarter: 2008Q4

REPORT INFORMATION
  Report Type: 
  Country: None (occurrence: None)
  Receive Date: 20081009
  Receipt Date: 20080930
  Transmission Date: 20090506
  Serious: Yes (Hospitalization)
  Sender: FDA-Public Use
  Company Number: CA-WYE-H06259908

PATIENT
  Age: 34 Year
  Sex: Male

DRUGS (2)
  1. PANTOPRAZOLE SODIUM [Suspect]
     Indication: GASTROINTESTINAL HAEMORRHAGE
     Route: 048
     Dates: start: 20071024, end: 20071103
  2. FERROUS SULFATE [Concomitant]
     Route: 048
     Dates: start: 20071024

REACTIONS (2)
  - HEADACHE [None]
  - OPTIC NEURITIS [None]
